FAERS Safety Report 5267087-8 (Version None)
Quarter: 2007Q1

REPORT INFORMATION
  Report Type: 
  Country: None (occurrence: None)
  Receive Date: 20070316
  Receipt Date: 20070307
  Transmission Date: 20070707
  Serious: Yes (Death)
  Sender: FDA-Public Use
  Company Number: PHBS2007DE04218

PATIENT
  Age: 51 Year
  Sex: Male

DRUGS (2)
  1. CYCLOSPORINE [Suspect]
     Indication: LIVER TRANSPLANT
  2. PREDNISONE [Suspect]
     Indication: LIVER TRANSPLANT

REACTIONS (2)
  - OESOPHAGEAL ADENOCARCINOMA [None]
  - SHOCK HAEMORRHAGIC [None]
